FAERS Safety Report 15265592 (Version 5)
Quarter: 2022Q2

REPORT INFORMATION
  Report Type: Spontaneous
  Country: PT (occurrence: PT)
  Receive Date: 20180810
  Receipt Date: 20220615
  Transmission Date: 20220721
  Serious: Yes (Other)
  Sender: FDA-Public Use
  Company Number: PT-002147023-PHHY2017PT132716

PATIENT
  Age: 33 Year
  Sex: Female
  Weight: 130 kg

DRUGS (30)
  1. HUMAN IMMUNOGLOBULIN G [Suspect]
     Active Substance: HUMAN IMMUNOGLOBULIN G
     Indication: Immune thrombocytopenia
     Dosage: 1 GRAM PER KILOGRAM
     Route: 042
     Dates: start: 20170704, end: 20170705
  2. PANTOPRAZOLE [Suspect]
     Active Substance: PANTOPRAZOLE
     Indication: Prophylaxis
     Dosage: 20 MG, QD
     Route: 048
     Dates: start: 20170703
  3. PANTOPRAZOLE [Suspect]
     Active Substance: PANTOPRAZOLE
     Indication: Gastric disorder
     Dosage: UNK
     Route: 065
  4. DEXAMETHASONE [Suspect]
     Active Substance: DEXAMETHASONE
     Indication: Product used for unknown indication
     Dosage: 6 MILLIGRAM, QD
     Route: 042
     Dates: start: 20170711, end: 20170712
  5. MISOPROSTOL [Suspect]
     Active Substance: MISOPROSTOL
     Indication: Labour induction
     Dosage: UNK
     Route: 065
  6. MISOPROSTOL [Suspect]
     Active Substance: MISOPROSTOL
     Indication: Pre-eclampsia
  7. ELTROMBOPAG [Suspect]
     Active Substance: ELTROMBOPAG
     Indication: Immune thrombocytopenia
     Dosage: 50 MILLIGRAM, QD
     Route: 048
     Dates: start: 20170718
  8. ELTROMBOPAG [Suspect]
     Active Substance: ELTROMBOPAG
     Dosage: 12.5 MILLIGRAM, QD
     Route: 048
     Dates: start: 20170804, end: 20170814
  9. ELTROMBOPAG [Suspect]
     Active Substance: ELTROMBOPAG
     Dosage: 25 MILLIGRAM, QD
     Route: 048
     Dates: start: 20170731
  10. ELTROMBOPAG [Suspect]
     Active Substance: ELTROMBOPAG
     Dosage: 25 MILLIGRAM, QOD
     Route: 065
  11. ELTROMBOPAG [Suspect]
     Active Substance: ELTROMBOPAG
     Dosage: 12.5 MILLIGRAM, QD
     Route: 065
  12. PREDNISOLONE [Suspect]
     Active Substance: PREDNISOLONE
     Indication: Immune thrombocytopenia
     Dosage: 120 MILLIGRAM, QD
     Route: 048
     Dates: start: 20170707
  13. PREDNISOLONE [Suspect]
     Active Substance: PREDNISOLONE
     Dosage: 80 MILLIGRAM, QD
     Route: 048
     Dates: start: 20170703
  14. PREDNISOLONE [Suspect]
     Active Substance: PREDNISOLONE
     Dosage: 120 MILLIGRAM, QD
     Route: 048
     Dates: start: 20170725
  15. PREDNISOLONE [Suspect]
     Active Substance: PREDNISOLONE
     Dosage: 40 MILLIGRAM, QD
     Route: 048
     Dates: start: 20170808, end: 20170816
  16. PREDNISOLONE [Suspect]
     Active Substance: PREDNISOLONE
     Dosage: 160 MILLIGRAM, QD
     Route: 048
     Dates: start: 20170711
  17. PREDNISOLONE [Suspect]
     Active Substance: PREDNISOLONE
     Dosage: 80 MILLIGRAM, QD
     Route: 048
     Dates: start: 20170731
  18. PREDNISOLONE [Suspect]
     Active Substance: PREDNISOLONE
     Dosage: 80 MILLIGRAM, QD
     Route: 048
  19. PREDNISOLONE [Suspect]
     Active Substance: PREDNISOLONE
     Dosage: 120 MILLIGRAM, QD
     Route: 048
  20. PREDNISOLONE [Suspect]
     Active Substance: PREDNISOLONE
     Dosage: 160 MILLIGRAM, QD
     Route: 048
  21. PREDNISOLONE [Suspect]
     Active Substance: PREDNISOLONE
     Dosage: 40 MILLIGRAM, QD
     Route: 048
  22. AZATHIOPRINE [Suspect]
     Active Substance: AZATHIOPRINE
     Indication: Immune thrombocytopenia
     Dosage: 150 MILLIGRAM, QD
     Route: 048
     Dates: start: 20170712, end: 20170731
  23. METHYLPREDNISOLONE [Suspect]
     Active Substance: METHYLPREDNISOLONE
     Indication: Immune thrombocytopenia
     Dosage: 90 MILLIGRAM, QD
     Route: 065
  24. NIFEDIPINE [Suspect]
     Active Substance: NIFEDIPINE
     Indication: Blood pressure measurement
     Dosage: UNK
     Route: 065
  25. NIFEDIPINE [Suspect]
     Active Substance: NIFEDIPINE
     Indication: Pre-eclampsia
  26. NIFEDIPINE [Suspect]
     Active Substance: NIFEDIPINE
     Indication: Blood pressure management
  27. ENOXAPARIN [Suspect]
     Active Substance: ENOXAPARIN
     Indication: Immune thrombocytopenia
     Dosage: 120 MILLIGRAM, QD
     Route: 065
  28. ENOXAPARIN [Suspect]
     Active Substance: ENOXAPARIN
     Indication: Thrombosis prophylaxis
     Dosage: 90 MILLIGRAM, QD
     Route: 065
  29. ENOXAPARIN [Suspect]
     Active Substance: ENOXAPARIN
     Dosage: 80 MILLIGRAM, QD
     Route: 065
  30. IRON [Concomitant]
     Active Substance: IRON
     Indication: Anaemia
     Dosage: UNK
     Route: 042

REACTIONS (8)
  - Infection [Unknown]
  - Thrombocytopenia [Unknown]
  - Premature delivery [Unknown]
  - Haematuria [Unknown]
  - Anaemia of pregnancy [Unknown]
  - Blood pressure increased [Unknown]
  - Drug ineffective [Unknown]
  - Maternal exposure during pregnancy [Unknown]
